FAERS Safety Report 19996869 (Version 1)
Quarter: 2021Q4

REPORT INFORMATION
  Report Type: Spontaneous
  Country: US (occurrence: US)
  Receive Date: 20211025
  Receipt Date: 20211025
  Transmission Date: 20220303
  Serious: Yes (Other)
  Sender: FDA-Public Use
  Company Number: None

PATIENT
  Sex: Male
  Weight: 140.61 kg

DRUGS (14)
  1. IMATINIB MESYLATE [Suspect]
     Active Substance: IMATINIB MESYLATE
     Indication: Chronic myeloid leukaemia
     Route: 048
     Dates: start: 20210603
  2. MORPHINE [Concomitant]
     Active Substance: MORPHINE
  3. DIOVAN [Concomitant]
     Active Substance: VALSARTAN
  4. ATENOLOL [Concomitant]
     Active Substance: ATENOLOL
  5. GLUCOPHAGE [Concomitant]
     Active Substance: METFORMIN HYDROCHLORIDE
  6. PROTONIX [Concomitant]
     Active Substance: PANTOPRAZOLE SODIUM
  7. ZOLPIDEM [Concomitant]
     Active Substance: ZOLPIDEM TARTRATE
  8. NYSTATIN [Concomitant]
     Active Substance: NYSTATIN
  9. DICLOFENAC [Concomitant]
     Active Substance: DICLOFENAC
  10. LEVEMIR [Concomitant]
     Active Substance: INSULIN DETEMIR
  11. FLONASE [Concomitant]
     Active Substance: FLUTICASONE PROPIONATE
  12. ATORVASTATIN [Concomitant]
     Active Substance: ATORVASTATIN
  13. PIOGLITAZONE [Concomitant]
     Active Substance: PIOGLITAZONE
  14. LEVAQUIN [Concomitant]
     Active Substance: LEVOFLOXACIN

REACTIONS (2)
  - Dehydration [None]
  - Renal disorder [None]
